FAERS Safety Report 9716973 (Version 2)
Quarter: 2014Q1

REPORT INFORMATION
  Report Type: Spontaneous
  Country: US (occurrence: None)
  Receive Date: 20131125
  Receipt Date: 20140318
  Transmission Date: 20141002
  Serious: Yes (Disabling, Congenital Anomaly, Other)
  Sender: FDA-Public Use
  Company Number: MIN-00948

PATIENT
  Age: 25 Year
  Sex: Female

DRUGS (4)
  1. MINOCIN [Suspect]
     Indication: SINUSITIS
     Route: 048
     Dates: start: 198012, end: 1980
  2. XANAX (ALPRAZOLAM) [Concomitant]
  3. ATENOLOL [Concomitant]
  4. RANITIDINE [Concomitant]

REACTIONS (20)
  - Abasia [None]
  - Abortion spontaneous [None]
  - Thrombosis [None]
  - Placental disorder [None]
  - Altered visual depth perception [None]
  - Cerebrovascular accident [None]
  - Gait disturbance [None]
  - Epistaxis [None]
  - Hypersensitivity [None]
  - Joint stiffness [None]
  - Asthenia [None]
  - Asthenia [None]
  - Contusion [None]
  - Mental impairment [None]
  - Protein deficiency [None]
  - Fatigue [None]
  - Maternal exposure during pregnancy [None]
  - Nervousness [None]
  - Gastrointestinal disorder [None]
  - Anxiety [None]
